FAERS Safety Report 6408877-5 (Version None)
Quarter: 2009Q4

REPORT INFORMATION
  Report Type: 
  Country: None (occurrence: None)
  Receive Date: 20091019
  Receipt Date: 20091006
  Transmission Date: 20100525
  Serious: Yes (Hospitalization)
  Sender: FDA-Public Use
  Company Number: 2009-04167

PATIENT
  Age: 81 Year
  Sex: Female
  Weight: 65.3 kg

DRUGS (7)
  1. VELCADE [Suspect]
     Indication: MULTIPLE MYELOMA
     Dosage: 2.5 MG, INTRAVENOUS
     Route: 042
     Dates: start: 20090910, end: 20090928
  2. MELPHALAN(MELPHALAN) [Suspect]
     Indication: MULTIPLE MYELOMA
     Dosage: 9 MG/M2
     Dates: start: 20090910
  3. PREVACID [Concomitant]
  4. LISINOPRIL [Concomitant]
  5. COREG [Concomitant]
  6. FUROSEMIDE [Concomitant]
  7. PREDNISONE TAB [Suspect]
     Indication: MULTIPLE MYELOMA
     Dosage: 100 MG, ORAL
     Route: 048
     Dates: start: 20090910

REACTIONS (4)
  - CARDIAC FAILURE ACUTE [None]
  - CARDIOMYOPATHY [None]
  - GENERALISED OEDEMA [None]
  - TACHYCARDIA [None]
